FAERS Safety Report 8529785-X (Version None)
Quarter: 2012Q3

REPORT INFORMATION
  Report Type: 
  Country: None (occurrence: None)
  Receive Date: 20120710
  Receipt Date: 20120628
  Transmission Date: 20120928
  Serious: Yes (Other)
  Sender: FDA-Public Use
  Company Number: 2012FR0151

PATIENT
  Sex: Male

DRUGS (2)
  1. KINERET [Suspect]
     Indication: MUCKLE-WELLS SYNDROME
     Dosage: 100 MG (100 MG,1 IN 1 D)
     Dates: start: 20050601, end: 20090118
  2. COLCHICINE [Concomitant]

REACTIONS (1)
  - SPERM CONCENTRATION DECREASED [None]
